FAERS Safety Report 7129724-2 (Version None)
Quarter: 2010Q4

REPORT INFORMATION
  Report Type: 
  Country: None (occurrence: None)
  Receive Date: 20101130
  Receipt Date: 20101118
  Transmission Date: 20110411
  Serious: Yes (Other)
  Sender: FDA-Public Use
  Company Number: JP-AMGEN-JPNSP2010006569

PATIENT

DRUGS (3)
  1. REGPARA [Suspect]
     Indication: PRODUCT USED FOR UNKNOWN INDICATION
     Dosage: 25 MG, QD
  2. BLOPRESS [Concomitant]
  3. SEPAMIT [Concomitant]

REACTIONS (2)
  - BLOOD PRESSURE DECREASED [None]
  - CEREBRAL INFARCTION [None]
